FAERS Safety Report 8773029 (Version 1)
Quarter: 2012Q4

REPORT INFORMATION
  Report Type: Report from Study
  Country: US (occurrence: US)
  Receive Date: 20120907
  Receipt Date: 20120907
  Transmission Date: 20130627
  Serious: Yes (Other)
  Sender: FDA-Public Use
  Company Number: US-ABBOTT-12P-163-0975113-00

PATIENT
  Sex: Female
  Weight: 99.43 kg

DRUGS (2)
  1. HUMIRA 40 MG/0.8 ML PEN [Suspect]
     Indication: PSORIATIC ARTHROPATHY
     Route: 058
     Dates: start: 201101, end: 201111
  2. HUMIRA 40 MG/0.8 ML PEN [Suspect]
     Route: 058

REACTIONS (4)
  - Nephrolithiasis [Unknown]
  - Transaminases increased [Recovered/Resolved]
  - Soft tissue infection [Recovered/Resolved]
  - Furuncle [Recovered/Resolved]
